FAERS Safety Report 8184693-1 (Version None)
Quarter: 2012Q1

REPORT INFORMATION
  Report Type: 
  Country: None (occurrence: None)
  Receive Date: 20120301
  Receipt Date: 20120216
  Transmission Date: 20120608
  Serious: Yes (Disabling)
  Sender: FDA-Public Use
  Company Number: EU-2012-10050

PATIENT
  Age: 78 Year
  Sex: Female

DRUGS (6)
  1. LEVOTHYROXINE SODIUM [Concomitant]
  2. PLETAL [Suspect]
     Indication: ARTHROPATHY
     Dosage: 50 MG, DAILY DOSE, ORAL
     Route: 048
     Dates: start: 20111020, end: 20111022
  3. RAMIPRIL [Concomitant]
  4. ASCRIPTIN (ACETYLSALICYLIC ACID, ALUMINIUM HYDROXYDE, MAGNESIUM HYDROX [Concomitant]
  5. SEQUACOR (BISOPROLOL FUMARATE) [Concomitant]
  6. NORVASC [Concomitant]

REACTIONS (3)
  - HAEMORRHAGIC VASCULITIS [None]
  - VASCULITIS NECROTISING [None]
  - WRONG TECHNIQUE IN DRUG USAGE PROCESS [None]
